FAERS Safety Report 6933672-8 (Version None)
Quarter: 2010Q3

REPORT INFORMATION
  Report Type: 
  Country: None (occurrence: None)
  Receive Date: 20100820
  Receipt Date: 20100816
  Transmission Date: 20110219
  Serious: Yes (Other)
  Sender: FDA-Public Use
  Company Number: US-PERRIGO-10US012245

PATIENT
  Sex: Male
  Weight: 24.49 kg

DRUGS (3)
  1. IBUPROFEN 100MG JR CHEWABLE 461 [Suspect]
     Indication: PYREXIA
     Dosage: 150 MG, SINGLE
     Route: 048
     Dates: start: 20100816, end: 20100816
  2. IBUPROFEN 100MG JR CHEWABLE 461 [Suspect]
     Dosage: UNK
     Route: 048
  3. CLARITIN [Concomitant]
     Indication: SEASONAL ALLERGY
     Dosage: 5 MG, QD
     Route: 048
     Dates: start: 20100802

REACTIONS (4)
  - HYPERSENSITIVITY [None]
  - OEDEMA MOUTH [None]
  - PRURITUS GENERALISED [None]
  - URTICARIA [None]
